FAERS Safety Report 7467135-0 (Version None)
Quarter: 2011Q2

REPORT INFORMATION
  Report Type: 
  Country: None (occurrence: None)
  Receive Date: 20110505
  Receipt Date: 20110505
  Transmission Date: 20111010
  Serious: Yes (Hospitalization)
  Sender: FDA-Public Use
  Company Number: None

PATIENT
  Age: 53 Year
  Sex: Male
  Weight: 55.8 kg

DRUGS (2)
  1. INSULIN [Suspect]
     Indication: DIABETES MELLITUS
     Dates: start: 20100609, end: 20100816
  2. INSULIN [Suspect]
     Indication: DIABETES MELLITUS
     Dosage: 6 UNITS AM SQ
     Route: 058
     Dates: start: 20100609, end: 20100816

REACTIONS (2)
  - HYPOGLYCAEMIA [None]
  - CONVULSION [None]
